FAERS Safety Report 9914983 (Version 2)
Quarter: 2014Q1

REPORT INFORMATION
  Report Type: Spontaneous
  Country: CZ (occurrence: CZ)
  Receive Date: 20140220
  Receipt Date: 20140220
  Transmission Date: 20141002
  Serious: Yes (Other)
  Sender: FDA-Public Use
  Company Number: PHHY2014CZ020381

PATIENT
  Age: 35 Year
  Sex: Female

DRUGS (5)
  1. IBUPROFEN [Suspect]
  2. TRAMADOL [Suspect]
  3. PHENTERMINE [Suspect]
  4. ALCOHOL [Suspect]
  5. NICOTINE [Suspect]

REACTIONS (1)
  - Drug dependence [Unknown]
